FAERS Safety Report 15719110 (Version 5)
Quarter: 2019Q2

REPORT INFORMATION
  Report Type: Report from Study
  Country: CN (occurrence: CN)
  Receive Date: 20181213
  Receipt Date: 20190401
  Transmission Date: 20190711
  Serious: Yes (Hospitalization, Other)
  Sender: FDA-Public Use
  Company Number: CN-ASTELLAS-2018US032409

PATIENT
  Age: 63 Year
  Sex: Female

DRUGS (5)
  1. ASP2215 [Suspect]
     Active Substance: GILTERITINIB
     Indication: ACUTE MYELOID LEUKAEMIA
     Dosage: UNK UNK, UNKNOWN FREQ.
     Route: 065
  2. WARFARIN [Concomitant]
     Active Substance: WARFARIN
     Indication: INTERNATIONAL NORMALISED RATIO DECREASED
     Route: 048
     Dates: start: 20180907
  3. CELECOXIB. [Concomitant]
     Active Substance: CELECOXIB
     Indication: PAIN
     Route: 048
     Dates: start: 20190109, end: 20190111
  4. RABEPRAZOLE [Concomitant]
     Active Substance: RABEPRAZOLE
     Indication: OESOPHAGITIS
     Route: 048
     Dates: start: 20181224
  5. CELECOXIB. [Concomitant]
     Active Substance: CELECOXIB
     Indication: INFLAMMATION

REACTIONS (9)
  - Infection [Recovered/Resolved]
  - Granulocytosis [Recovered/Resolved]
  - Hepatic function abnormal [Recovering/Resolving]
  - Lung infection [Recovered/Resolved]
  - Lung infection [Not Recovered/Not Resolved]
  - Pyrexia [Recovering/Resolving]
  - Liver injury [Recovered/Resolved]
  - Hepatic function abnormal [Not Recovered/Not Resolved]
  - Hepatic function abnormal [Recovered/Resolved]

NARRATIVE: CASE EVENT DATE: 20180713
